FAERS Safety Report 8942053 (Version 1)
Quarter: 2012Q4

REPORT INFORMATION
  Report Type: 
  Country: US (occurrence: US)
  Receive Date: 20121203
  Receipt Date: 20121203
  Transmission Date: 20130627
  Serious: Yes (Hospitalization, Congenital Anomaly, Other)
  Sender: FDA-Public Use
  Company Number: US-PFIZER INC-2012299075

PATIENT
  Sex: Male
  Weight: 2.4 kg

DRUGS (10)
  1. ZOLOFT [Suspect]
     Indication: DEPRESSION
     Dosage: 100 mg, 1x/day
     Route: 064
     Dates: start: 20020319, end: 20040427
  2. ZOLOFT [Suspect]
     Dosage: 25 mg, 1x/day
     Route: 064
     Dates: start: 20020409
  3. ZOLOFT [Suspect]
     Dosage: 50 mg, 2x/day
     Route: 064
     Dates: start: 20020919
  4. ZOLOFT [Suspect]
     Dosage: 100 mg, 2x/day
     Route: 064
     Dates: start: 20021219
  5. ZOLOFT [Suspect]
     Dosage: UNK
     Route: 064
     Dates: start: 20030403
  6. ZOLOFT [Suspect]
     Dosage: 100 mg, 1x/day
     Route: 064
     Dates: start: 20030421
  7. PRENATAL VITAMINS [Concomitant]
     Dosage: UNK
     Route: 064
     Dates: start: 20030227
  8. ATARAX [Concomitant]
     Dosage: 25 mg
     Route: 064
     Dates: start: 20020911
  9. MEDROL [Concomitant]
     Dosage: UNK
     Route: 064
     Dates: start: 20020911
  10. VISTARIL [Concomitant]
     Dosage: 25 mg
     Route: 064
     Dates: start: 20020911

REACTIONS (6)
  - Maternal exposure timing unspecified [Unknown]
  - Ventricular septal defect [Unknown]
  - Jaundice neonatal [Unknown]
  - Atrial septal defect [Unknown]
  - Left ventricular dysfunction [Unknown]
  - Small for dates baby [Unknown]
